FAERS Safety Report 5450312-8 (Version None)
Quarter: 2007Q3

REPORT INFORMATION
  Report Type: 
  Country: None (occurrence: None)
  Receive Date: 20070912
  Receipt Date: 20070904
  Transmission Date: 20080115
  Serious: Yes (Hospitalization)
  Sender: FDA-Public Use
  Company Number: CH-ASTRAZENECA-2007PK01841

PATIENT
  Age: 36 Year
  Sex: Female

DRUGS (4)
  1. SEROQUEL [Suspect]
     Indication: PSYCHOTIC DISORDER
     Route: 048
     Dates: start: 20070730
  2. LEPONEX [Suspect]
     Indication: PSYCHOTIC DISORDER
     Dates: start: 20070731, end: 20070731
  3. LEPONEX [Suspect]
     Dates: start: 20070801
  4. LORASIFAR [Concomitant]
     Dosage: STEPWISE DOSE REDUCTION

REACTIONS (3)
  - DRUG INTERACTION [None]
  - EPILEPSY [None]
  - MYOCLONUS [None]
